FAERS Safety Report 8914122 (Version 1)
Quarter: 2012Q4

REPORT INFORMATION
  Report Type: Spontaneous
  Country: US (occurrence: None)
  Receive Date: 20121115
  Receipt Date: 20121115
  Transmission Date: 20130627
  Serious: No
  Sender: FDA-Public Use
  Company Number: None

PATIENT

DRUGS (1)
  1. BOSULIF [Suspect]
     Route: 048
     Dates: start: 20121107, end: 20121113

REACTIONS (2)
  - Diarrhoea [None]
  - Vomiting [None]
